FAERS Safety Report 5763549-5 (Version None)
Quarter: 2008Q2

REPORT INFORMATION
  Report Type: 
  Country: None (occurrence: None)
  Receive Date: 20080610
  Receipt Date: 20080529
  Transmission Date: 20081010
  Serious: Yes (Hospitalization)
  Sender: FDA-Public Use
  Company Number: US-JNJFOC-20071109764

PATIENT
  Sex: Female
  Weight: 97.52 kg

DRUGS (20)
  1. DURAGESIC-100 [Suspect]
     Indication: PAIN
     Dosage: 1X 100 UG/HR PATCH PLUS 1X 25 UG/HR PATCH
     Route: 062
  2. PREDNISONE TAB [Concomitant]
  3. PREDNISONE TAB [Concomitant]
  4. ACIPHEX [Concomitant]
     Route: 048
  5. COUMADIN [Concomitant]
  6. COUMADIN [Concomitant]
  7. COUMADIN [Concomitant]
     Dosage: 5MG ON MONDAY, WEDNESDAY AND FRIDAY AND HALF A TABLET ON ALL OTHER DAYS
  8. DARVOCET-N 100 [Concomitant]
     Indication: PAIN
     Route: 048
  9. DIAZEPAM [Concomitant]
     Dosage: 4-6 HOURS AS NECESSARY
     Route: 048
  10. LEXAPRO [Concomitant]
  11. MAGNESIUM [Concomitant]
  12. POTASSIUM CHLORIDE [Concomitant]
     Route: 048
  13. POTASSIUM CHLORIDE [Concomitant]
     Route: 048
  14. DEMADEX [Concomitant]
  15. DEMADEX [Concomitant]
     Indication: OEDEMA
  16. PROTONIX [Concomitant]
  17. PREMARIN [Concomitant]
  18. MULTI-VITAMIN [Concomitant]
  19. VALIUM [Concomitant]
     Indication: ANXIETY
     Dosage: AS NECESSARY
  20. LOVENOX [Concomitant]
     Route: 058

REACTIONS (2)
  - APPLICATION SITE ERYTHEMA [None]
  - DEEP VEIN THROMBOSIS [None]
